FAERS Safety Report 7078433-7 (Version None)
Quarter: 2010Q4

REPORT INFORMATION
  Report Type: 
  Country: None (occurrence: None)
  Receive Date: 20101102
  Receipt Date: 20101019
  Transmission Date: 20110411
  Serious: Yes (Other)
  Sender: FDA-Public Use
  Company Number: KR-CELGENEUS-286-50794-10101928

PATIENT
  Age: 52 Year
  Sex: Male

DRUGS (3)
  1. VIDAZA [Suspect]
     Route: 065
     Dates: start: 20100326
  2. VIDAZA [Suspect]
     Route: 065
     Dates: start: 20100930
  3. BARACLUDE [Concomitant]
     Route: 065
     Dates: start: 20100801

REACTIONS (4)
  - FEBRILE NEUTROPENIA [None]
  - HEPATIC ENZYME INCREASED [None]
  - PANCYTOPENIA [None]
  - PULMONARY MYCOSIS [None]
